FAERS Safety Report 21595594 (Version 1)
Quarter: 2022Q4

REPORT INFORMATION
  Report Type: Report from Study
  Country: MX (occurrence: None)
  Receive Date: 20221115
  Receipt Date: 20221115
  Transmission Date: 20230113
  Serious: Yes (Hospitalization, Other)
  Sender: FDA-Public Use
  Company Number: MX-Orion Corporation ORION PHARMA-ENTC2022-0222

PATIENT
  Age: 76 Year
  Sex: Male

DRUGS (1)
  1. STALEVO [Suspect]
     Active Substance: CARBIDOPA\ENTACAPONE\LEVODOPA
     Indication: Product used for unknown indication
     Dosage: AT A DOSE OF 387.5 MG (150/37.5/200 MG) (LEVODOPA-CARBIDOPA-ENTACAPONE)
     Route: 065

REACTIONS (1)
  - Neoplasm malignant [Unknown]
